FAERS Safety Report 5523000-7 (Version None)
Quarter: 2007Q4

REPORT INFORMATION
  Report Type: 
  Country: None (occurrence: None)
  Receive Date: 20071121
  Receipt Date: 20071110
  Transmission Date: 20080405
  Serious: Yes (Hospitalization)
  Sender: FDA-Public Use
  Company Number: PHHY2007MX00452

PATIENT
  Age: 55 Year
  Sex: Female

DRUGS (1)
  1. ZELMAC [Suspect]
     Indication: IRRITABLE BOWEL SYNDROME
     Dosage: UNK, UNK
     Route: 048

REACTIONS (3)
  - GALLBLADDER OPERATION [None]
  - UPPER LIMB FRACTURE [None]
  - WRIST FRACTURE [None]
